FAERS Safety Report 25021767 (Version 3)
Quarter: 2025Q2

REPORT INFORMATION
  Report Type: Report from Study
  Country: CA (occurrence: CA)
  Receive Date: 20250228
  Receipt Date: 20250516
  Transmission Date: 20250717
  Serious: Yes (Other)
  Sender: TAKEDA
  Company Number: CA-TAKEDA-2025TUS021375

PATIENT
  Age: 21 Year
  Sex: Male

DRUGS (13)
  1. VEDOLIZUMAB [Suspect]
     Active Substance: VEDOLIZUMAB
     Indication: Colitis ulcerative
  2. VEDOLIZUMAB [Suspect]
     Active Substance: VEDOLIZUMAB
     Dosage: 300 MILLIGRAM, Q4WEEKS
     Dates: start: 20250321
  3. VEDOLIZUMAB [Suspect]
     Active Substance: VEDOLIZUMAB
     Dosage: 300 MILLIGRAM, Q4WEEKS
  4. IMURAN [Concomitant]
     Active Substance: AZATHIOPRINE
  5. BUDESONIDE [Concomitant]
     Active Substance: BUDESONIDE
  6. ENTOCORT [Concomitant]
     Active Substance: BUDESONIDE
  7. Cortiment [Concomitant]
  8. MESALAMINE [Concomitant]
     Active Substance: MESALAMINE
  9. MESALAMINE [Concomitant]
     Active Substance: MESALAMINE
  10. CALCIUM [Concomitant]
     Active Substance: CALCIUM
     Indication: Supplementation therapy
  11. VITAMIN D [Concomitant]
     Active Substance: VITAMIN D NOS
  12. IRON [Concomitant]
     Active Substance: IRON
  13. VITAMIN C [Concomitant]
     Active Substance: ASCORBIC ACID

REACTIONS (2)
  - Colitis ulcerative [Unknown]
  - Abdominal pain [Recovered/Resolved]

NARRATIVE: CASE EVENT DATE: 20241229
